FAERS Safety Report 8606750 (Version 3)
Quarter: 2014Q2

REPORT INFORMATION
  Report Type: Spontaneous
  Country: US (occurrence: US)
  Receive Date: 20120611
  Receipt Date: 20140401
  Transmission Date: 20141212
  Serious: Yes (Disabling)
  Sender: FDA-Public Use
  Company Number: US-ASTRAZENECA-2012SE35024

PATIENT
  Age: 41 Year
  Sex: Male

DRUGS (29)
  1. NEXIUM [Suspect]
     Indication: GASTROOESOPHAGEAL REFLUX DISEASE
     Dosage: TWICE A DAY
     Route: 048
  2. NEXIUM [Suspect]
     Indication: GASTROOESOPHAGEAL REFLUX DISEASE
     Route: 048
     Dates: start: 20080209
  3. MYLANTA [Concomitant]
  4. TUMS [Concomitant]
  5. ROLAIDS [Concomitant]
  6. ZANTAC [Concomitant]
  7. MILK OF MAGNESIA [Concomitant]
  8. PEPTO BISMOL [Concomitant]
  9. MORPHINE [Concomitant]
     Indication: PAIN
  10. MORPHINE [Concomitant]
     Indication: PAIN
  11. METOPROLOL [Concomitant]
     Indication: BLOOD PRESSURE ABNORMAL
  12. SIMVASTATIN [Concomitant]
     Indication: BLOOD CHOLESTEROL ABNORMAL
  13. LEVOTHYROXINE [Concomitant]
     Indication: THYROID DISORDER
  14. CALCIUM [Concomitant]
     Indication: NUTRITIONAL SUPPLEMENTATION
  15. VITAMIN D [Concomitant]
     Indication: NUTRITIONAL SUPPLEMENTATION
  16. CENTRUM [Concomitant]
     Indication: NUTRITIONAL SUPPLEMENTATION
  17. POTASSIUM [Concomitant]
     Indication: NUTRITIONAL SUPPLEMENTATION
  18. TEMAZEPAM [Concomitant]
     Dates: start: 20080209
  19. PREDNISONE [Concomitant]
     Dosage: 20 MG TAB, TAKE 03 TABLETS DAILY FOR 5 DAYS
     Dates: start: 20080209
  20. PREDNISONE [Concomitant]
     Dosage: 20 MG TAB, TAKE 02 TABLETS DAILY FOR 5 DAYS
     Dates: start: 20080209
  21. PREDNISONE [Concomitant]
     Dosage: 20 MG, TAKE 01 TABLETS DAILY FOR 5 DAYS
     Dates: start: 20080209
  22. DIAZEPAM [Concomitant]
     Dates: start: 20080215
  23. ZOLPIDEM [Concomitant]
     Dates: start: 20080215
  24. NAPROXEN [Concomitant]
     Dates: start: 20080319
  25. LEVAQUIN [Concomitant]
     Dates: start: 20080219
  26. CYCLOBENZAPRINE [Concomitant]
     Dates: start: 20080623
  27. OXCARBAZEPINE [Concomitant]
     Dates: start: 20080714
  28. PHENYTOIN [Concomitant]
     Dates: start: 20080715
  29. TRIAM/HCTZ [Concomitant]
     Indication: SWELLING
     Dosage: 37.5/25 MG DAILY
     Dates: start: 20080623

REACTIONS (6)
  - Heat stroke [Unknown]
  - Osteoporosis [Unknown]
  - Hand fracture [Unknown]
  - Osteoarthritis [Unknown]
  - Arthritis [Unknown]
  - Meniscus injury [Unknown]
